FAERS Safety Report 7020813-X (Version None)
Quarter: 2010Q3

REPORT INFORMATION
  Report Type: 
  Country: None (occurrence: None)
  Receive Date: 20100929
  Receipt Date: 20100914
  Transmission Date: 20110219
  Serious: Yes (Disabling)
  Sender: FDA-Public Use
  Company Number: US-MERCK-1008USA01084

PATIENT
  Age: 80 Year
  Sex: Female
  Weight: 104 kg

DRUGS (6)
  1. JANUVIA [Suspect]
     Indication: TYPE 2 DIABETES MELLITUS
     Route: 048
     Dates: start: 20080501, end: 20100720
  2. WARFARIN [Concomitant]
     Indication: DEEP VEIN THROMBOSIS
     Route: 065
     Dates: start: 19890101
  3. LISINOPRIL [Concomitant]
     Route: 065
  4. METOPROLOL [Concomitant]
     Route: 065
  5. OXYBUTYNIN [Concomitant]
     Route: 065
  6. LOVASTATIN [Concomitant]
     Route: 065

REACTIONS (2)
  - ADVERSE EVENT [None]
  - DIZZINESS [None]
